FAERS Safety Report 24875170 (Version 1)
Quarter: 2025Q1

REPORT INFORMATION
  Report Type: Spontaneous
  Country: DK (occurrence: DK)
  Receive Date: 20250122
  Receipt Date: 20250122
  Transmission Date: 20250409
  Serious: Yes (Hospitalization, Other)
  Sender: MYLAN
  Company Number: None

PATIENT
  Age: 31 Year
  Sex: Female

DRUGS (2)
  1. SERTRALINE [Interacting]
     Active Substance: SERTRALINE HYDROCHLORIDE
     Indication: Depression
     Dosage: 100 MILLIGRAM, QD
     Route: 065
     Dates: start: 20240619
  2. CLINDAMYCIN [Interacting]
     Active Substance: CLINDAMYCIN
     Indication: Inflammation
     Dosage: 300 MILLIGRAM, TID (0.33 DAY)
     Route: 048
     Dates: start: 202411, end: 202412

REACTIONS (3)
  - Gastrointestinal disorder [Unknown]
  - Haematochezia [Unknown]
  - Drug interaction [Unknown]

NARRATIVE: CASE EVENT DATE: 20241201
